FAERS Safety Report 7761540-0 (Version None)
Quarter: 2011Q3

REPORT INFORMATION
  Report Type: 
  Country: None (occurrence: None)
  Receive Date: 20110920
  Receipt Date: 20110915
  Transmission Date: 20111222
  Serious: Yes (Other)
  Sender: FDA-Public Use
  Company Number: US-PFIZER INC-2011219368

PATIENT
  Sex: Female

DRUGS (9)
  1. PROTONIX [Suspect]
     Indication: GASTROOESOPHAGEAL REFLUX DISEASE
     Dosage: DAILY
     Dates: start: 20050101
  2. PLAVIX [Concomitant]
     Dosage: 75 MG, UNK
  3. FUROSEMIDE [Concomitant]
     Dosage: 40 MG, UNK
  4. LISINOPRIL [Concomitant]
     Indication: HYPERTENSION
     Dosage: 10 MG, 2X/DAY
  5. ACETYLSALICYLIC ACID [Concomitant]
     Dosage: 81 MG, UNK
  6. PROTONIX [Suspect]
     Dosage: UNK
     Dates: start: 20100101, end: 20100101
  7. SPIRONOLACTONE [Concomitant]
     Dosage: 25 MG, UNK
  8. LOVASTATIN [Concomitant]
     Dosage: UNK
  9. DOCUSATE [Concomitant]
     Dosage: UNK

REACTIONS (7)
  - GASTROOESOPHAGEAL REFLUX DISEASE [None]
  - DRUG HYPERSENSITIVITY [None]
  - ABDOMINAL PAIN UPPER [None]
  - MYOCARDIAL INFARCTION [None]
  - PALPITATIONS [None]
  - GALLBLADDER DISORDER [None]
  - WEIGHT DECREASED [None]
